FAERS Safety Report 20019075 (Version 1)
Quarter: 2021Q4

REPORT INFORMATION
  Report Type: Spontaneous
  Country: BE (occurrence: BE)
  Receive Date: 20211101
  Receipt Date: 20211101
  Transmission Date: 20220303
  Serious: Yes (Other)
  Sender: FDA-Public Use
  Company Number: None

PATIENT
  Sex: Female

DRUGS (3)
  1. DICLOFENAC [Suspect]
     Active Substance: DICLOFENAC
     Indication: Product used for unknown indication
     Dosage: 3 DOSAGE FORM, QD
     Route: 065
  2. ACETAMINOPHEN [Concomitant]
     Active Substance: ACETAMINOPHEN
     Dosage: 4 DOSAGE FORM, QD
     Route: 065
  3. PANTOMED                           /00178901/ [Concomitant]
     Dosage: UNK
     Route: 065

REACTIONS (4)
  - Faeces discoloured [Unknown]
  - Anaemia [Unknown]
  - Gastric ulcer [Unknown]
  - Gastric haemorrhage [Unknown]
